FAERS Safety Report 9767814 (Version 1)
Quarter: 2013Q4

REPORT INFORMATION
  Report Type: Spontaneous
  Country: US (occurrence: US)
  Receive Date: 20131217
  Receipt Date: 20131217
  Transmission Date: 20140711
  Serious: No
  Sender: FDA-Public Use
  Company Number: US-009507513-1312USA006144

PATIENT
  Age: 20 Month
  Sex: Female

DRUGS (1)
  1. MIRALAX [Suspect]
     Indication: CONSTIPATION
     Dosage: UNK, QD
     Route: 048
     Dates: start: 20131126, end: 20131203

REACTIONS (3)
  - Drug administered to patient of inappropriate age [Unknown]
  - Incorrect drug administration duration [Unknown]
  - Off label use [Unknown]
